FAERS Safety Report 10196933 (Version 2)
Quarter: 2014Q2

REPORT INFORMATION
  Report Type: Spontaneous
  Country: CH (occurrence: CH)
  Receive Date: 20140527
  Receipt Date: 20140617
  Transmission Date: 20141212
  Serious: Yes (Hospitalization)
  Sender: FDA-Public Use
  Company Number: CH-SA-2014SA063476

PATIENT
  Age: 76 Year
  Sex: Male

DRUGS (8)
  1. PLAVIX [Suspect]
     Indication: PRODUCT USED FOR UNKNOWN INDICATION
     Route: 048
  2. SINTROM [Suspect]
     Indication: PRODUCT USED FOR UNKNOWN INDICATION
     Dosage: STRENGTH: 1 MG
     Route: 048
  3. ATACAND [Concomitant]
  4. TOREM [Concomitant]
  5. ZANIDIP [Concomitant]
  6. DIAMICRON [Concomitant]
  7. PRAVASTATIN SODIUM [Concomitant]
  8. DUODART [Concomitant]

REACTIONS (3)
  - Angina pectoris [Recovered/Resolved]
  - Anaemia [Recovering/Resolving]
  - Gastrointestinal haemorrhage [Recovering/Resolving]
